FAERS Safety Report 9250972 (Version 1)
Quarter: 2013Q1

REPORT INFORMATION
  Report Type: Spontaneous
  Country: US (occurrence: None)
  Receive Date: 20130305
  Receipt Date: 20130305
  Transmission Date: 20140127
  Serious: Yes (Hospitalization)
  Sender: FDA-Public Use
  Company Number: 163-21880-12100622

PATIENT
  Age: 63 Year
  Sex: Female
  Weight: 53.52 kg

DRUGS (6)
  1. REVLIMID (LENALIDOMIDE) (CAPSULES) [Suspect]
     Indication: PLASMA CELL MYELOMA
     Dosage: 25MG, 21 IN 21 D, PO
     Route: 048
     Dates: start: 201207
  2. ACETAMINOPHEN\HYDROCODONE BITARTRATE [Concomitant]
  3. TYLENOL (PARACETAMOL) [Concomitant]
  4. METAMUCIL (METAMUCIL ^PROCTER + GAMBLE^) [Concomitant]
  5. TRAMADOL (TRAMADOL) [Concomitant]
  6. MORPHINE [Concomitant]

REACTIONS (5)
  - Spinal compression fracture [None]
  - Chest pain [None]
  - Painful respiration [None]
  - Abdominal pain [None]
  - Alanine aminotransferase increased [None]
